FAERS Safety Report 9951103 (Version 1)
Quarter: 2014Q1

REPORT INFORMATION
  Report Type: Spontaneous
  Country: US (occurrence: US)
  Receive Date: 20140304
  Receipt Date: 20140304
  Transmission Date: 20141002
  Serious: No
  Sender: FDA-Public Use
  Company Number: US-PFIZER INC-2014061534

PATIENT
  Age: 57 Year
  Sex: Female

DRUGS (9)
  1. NEURONTIN [Suspect]
     Dosage: UNK
  2. NORVASC [Suspect]
     Dosage: UNK
  3. AMBIEN [Suspect]
     Dosage: UNK
  4. AMOXICILLIN [Suspect]
     Dosage: UNK
  5. TRAZODONE [Suspect]
     Dosage: UNK
  6. TOPROL XL [Suspect]
     Dosage: UNK
  7. CARDIZEM [Suspect]
     Dosage: UNK
  8. REGLAN [Suspect]
     Dosage: UNK
  9. DARVOCET [Suspect]
     Dosage: UNK

REACTIONS (1)
  - Drug hypersensitivity [Unknown]
